FAERS Safety Report 6679479-0 (Version None)
Quarter: 2010Q2

REPORT INFORMATION
  Report Type: 
  Country: None (occurrence: None)
  Receive Date: 20100413
  Receipt Date: 20100331
  Transmission Date: 20101027
  Serious: Yes (Other)
  Sender: FDA-Public Use
  Company Number: PHHY2009JP49526

PATIENT
  Sex: Male
  Weight: 55 kg

DRUGS (10)
  1. ZOMETA [Suspect]
     Indication: METASTASES TO BONE
     Dosage: 4 MG, QMO
     Route: 041
     Dates: start: 20060901
  2. DECADRON [Concomitant]
     Dosage: 3 DF, UNK
     Route: 048
  3. GASMOTIN [Concomitant]
     Dosage: 15 MG, UNK
     Route: 048
  4. TAKEPRON [Concomitant]
     Dosage: 1 DF, UNK
     Route: 048
  5. LIPIDIL [Concomitant]
     Dosage: 100 MG, UNK
     Route: 048
  6. OXYCONTIN [Concomitant]
     Dosage: 10 MG, UNK
     Route: 048
  7. PRIMPERAN [Concomitant]
     Dosage: 3 DF, UNK
     Route: 048
  8. MAGMITT [Concomitant]
     Dosage: 3 DF, UNK
     Route: 048
  9. OPSO [Concomitant]
     Dosage: 5 MG, UNK
     Route: 048
  10. LENDORMIN D [Concomitant]
     Dosage: 0.25 MG, UNK
     Route: 048

REACTIONS (5)
  - IMPAIRED HEALING [None]
  - OSTEONECROSIS [None]
  - PAIN [None]
  - SEQUESTRECTOMY [None]
  - TOOTH EXTRACTION [None]
